FAERS Safety Report 22274783 (Version 1)
Quarter: 2023Q2

REPORT INFORMATION
  Report Type: Spontaneous
  Country: GB (occurrence: GB)
  Receive Date: 20230502
  Receipt Date: 20230502
  Transmission Date: 20230721
  Serious: Yes (Other)
  Sender: FDA-Public Use
  Company Number: GB-AMGEN-GBRSP2023073326

PATIENT
  Age: 6 Year
  Sex: Female

DRUGS (3)
  1. ADALIMUMAB [Suspect]
     Active Substance: ADALIMUMAB
     Indication: Acute febrile neutrophilic dermatosis
     Dosage: 40 MILLIGRAM, Q2WK
     Route: 065
  2. ADALIMUMAB [Suspect]
     Active Substance: ADALIMUMAB
     Indication: Combined immunodeficiency
  3. PREDNISOLONE [Concomitant]
     Active Substance: PREDNISOLONE

REACTIONS (6)
  - Acute febrile neutrophilic dermatosis [Unknown]
  - Drug effective for unapproved indication [Unknown]
  - Drug specific antibody [Unknown]
  - Adenosine deaminase 2 deficiency [Unknown]
  - Off label use [Unknown]
  - Infection [Unknown]
